FAERS Safety Report 13427772 (Version 1)
Quarter: 2017Q2

REPORT INFORMATION
  Report Type: Spontaneous
  Country: IN (occurrence: IN)
  Receive Date: 20170411
  Receipt Date: 20170411
  Transmission Date: 20170830
  Serious: Yes (Other)
  Sender: FDA-Public Use
  Company Number: IN-JNJFOC-20170404250

PATIENT

DRUGS (4)
  1. ETANERCEPT [Suspect]
     Active Substance: ETANERCEPT
     Indication: ANKYLOSING SPONDYLITIS
     Dosage: 25 MG OR 50 MG
     Route: 058
  2. CALCIUM [Concomitant]
     Active Substance: CALCIUM
     Dosage: 400 - 800 MG
     Route: 065
  3. INFLIXIMAB, RECOMBINANT [Suspect]
     Active Substance: INFLIXIMAB
     Indication: ANKYLOSING SPONDYLITIS
     Dosage: 3 TO 5 MG/KG
     Route: 042
  4. ETANERCEPT [Suspect]
     Active Substance: ETANERCEPT
     Indication: ANKYLOSING SPONDYLITIS
     Dosage: 25 MG OR 50 MG
     Route: 058

REACTIONS (7)
  - Disseminated tuberculosis [Unknown]
  - Liver abscess [Unknown]
  - Hepatitis A [Unknown]
  - Infusion related reaction [Recovered/Resolved]
  - Ankylosing spondylitis [Unknown]
  - Rhinitis [Unknown]
  - Pharyngitis [Unknown]
